FAERS Safety Report 5586985-9 (Version None)
Quarter: 2008Q1

REPORT INFORMATION
  Report Type: 
  Country: None (occurrence: None)
  Receive Date: 20080110
  Receipt Date: 20080104
  Transmission Date: 20080703
  Serious: Yes (Other)
  Sender: FDA-Public Use
  Company Number: A0656583A

PATIENT
  Age: 76 Year
  Sex: Male

DRUGS (8)
  1. AVODART [Suspect]
     Indication: BENIGN PROSTATIC HYPERPLASIA
     Dosage: .5MG PER DAY
     Route: 048
     Dates: start: 20060101
  2. PLAVIX [Concomitant]
  3. ASPIRIN [Concomitant]
  4. GLIPIZIDE [Concomitant]
  5. VITAMIN E [Concomitant]
  6. NORVASC [Concomitant]
  7. LIPITOR [Concomitant]
  8. TOPROL-XL [Concomitant]

REACTIONS (5)
  - DRUG INTERACTION [None]
  - PHARMACEUTICAL PRODUCT COMPLAINT [None]
  - POLLAKIURIA [None]
  - THERAPEUTIC PRODUCT CONTAMINATION [None]
  - URINE FLOW DECREASED [None]
